FAERS Safety Report 5212016-6 (Version None)
Quarter: 2007Q1

REPORT INFORMATION
  Report Type: 
  Country: None (occurrence: None)
  Receive Date: 20070118
  Receipt Date: 20070117
  Transmission Date: 20070707
  Serious: Yes (Other)
  Sender: FDA-Public Use
  Company Number: US-SHR-US-2006-024007

PATIENT
  Age: 47 Year
  Sex: Female
  Weight: 72.6 kg

DRUGS (2)
  1. MIRENA [Suspect]
     Indication: CONTRACEPTION
     Dosage: 20 A?G/DAY, CONT
     Route: 015
     Dates: start: 20060629, end: 20060902
  2. TOPROL-XL [Concomitant]
     Indication: HYPERTENSION
     Dosage: UNK, 1X/DAY

REACTIONS (4)
  - CARDIAC FLUTTER [None]
  - DYSPNOEA [None]
  - HEART RATE IRREGULAR [None]
  - PALPITATIONS [None]
